FAERS Safety Report 26092736 (Version 1)
Quarter: 2025Q4

REPORT INFORMATION
  Report Type: Spontaneous
  Country: EU (occurrence: EU)
  Receive Date: 20251126
  Receipt Date: 20251126
  Transmission Date: 20260117
  Serious: Yes (Other)
  Sender: PFIZER
  Company Number: EU-PFIZER INC-PV202500138846

PATIENT
  Age: 35 Year
  Sex: Male
  Weight: 81.2 kg

DRUGS (1)
  1. INFLIXIMAB [Suspect]
     Active Substance: INFLIXIMAB
     Indication: Psoriatic arthropathy
     Dosage: 410 MG
     Route: 042
     Dates: start: 20230719, end: 20230830

REACTIONS (7)
  - Malaise [Recovering/Resolving]
  - Erythema [Recovered/Resolved]
  - Chest discomfort [Recovered/Resolved]
  - Hypersensitivity [Recovering/Resolving]
  - Feeling hot [Recovered/Resolved]
  - Throat irritation [Unknown]
  - Dyspnoea [Recovered/Resolved]

NARRATIVE: CASE EVENT DATE: 20230830
